FAERS Safety Report 21172026 (Version 1)
Quarter: 2022Q3

REPORT INFORMATION
  Report Type: Spontaneous
  Country: US (occurrence: None)
  Receive Date: 20220803
  Receipt Date: 20220803
  Transmission Date: 20221026
  Serious: Yes (Other)
  Sender: FDA-Public Use
  Company Number: None

PATIENT
  Age: 86 Year
  Sex: Male

DRUGS (7)
  1. XTANDI [Suspect]
     Active Substance: ENZALUTAMIDE
     Indication: Prostate cancer
     Dosage: FREQUENCY : DAILY;?
     Route: 048
     Dates: start: 20220607, end: 20220720
  2. LEUPROLIDE [Concomitant]
     Active Substance: LEUPROLIDE
  3. VITAMIN B12 [Concomitant]
     Active Substance: CYANOCOBALAMIN
  4. FELODIPINE [Concomitant]
     Active Substance: FELODIPINE
  5. LIVALO [Concomitant]
     Active Substance: PITAVASTATIN CALCIUM
  6. FAMOTIDINE [Concomitant]
     Active Substance: FAMOTIDINE
  7. METAMUCIL [Concomitant]
     Active Substance: PLANTAGO SEED

REACTIONS (3)
  - Blood pressure increased [None]
  - Headache [None]
  - Paraesthesia [None]

NARRATIVE: CASE EVENT DATE: 20220720
